FAERS Safety Report 7887741-9 (Version None)
Quarter: 2011Q4

REPORT INFORMATION
  Report Type: 
  Country: None (occurrence: None)
  Receive Date: 20111103
  Receipt Date: 20111020
  Transmission Date: 20120403
  Serious: Yes (Other)
  Sender: FDA-Public Use
  Company Number: US-RANBAXY-2011US-50084

PATIENT

DRUGS (6)
  1. ZIDOVUDINE [Suspect]
     Indication: ANTIRETROVIRAL THERAPY
     Dosage: 2.0 MG/KG/HR, UNK
     Route: 065
     Dates: start: 20110915, end: 20110915
  2. KALETRA [Suspect]
     Indication: ANTIRETROVIRAL THERAPY
     Dosage: UNK
     Route: 048
     Dates: start: 20110421, end: 20110428
  3. PREZISTA [Suspect]
     Indication: ANTIRETROVIRAL THERAPY
     Dosage: 800 MG, QD
     Route: 048
     Dates: start: 20110428
  4. NORVIR [Suspect]
     Dosage: 100 MG, QD
     Route: 048
     Dates: start: 20110519
  5. NORVIR [Suspect]
     Indication: ANTIRETROVIRAL THERAPY
     Dosage: 200 MG, QD
     Route: 048
     Dates: start: 20110428, end: 20110518
  6. COMBIVIR [Suspect]
     Indication: ANTIRETROVIRAL THERAPY
     Dosage: UNK
     Route: 048
     Dates: start: 20110421, end: 20110915

REACTIONS (2)
  - CONGENITAL ANOMALY IN OFFSPRING [None]
  - MATERNAL EXPOSURE DURING PREGNANCY [None]
